FAERS Safety Report 11772723 (Version 1)
Quarter: 2015Q4

REPORT INFORMATION
  Report Type: Spontaneous
  Country: US (occurrence: None)
  Receive Date: 20151123
  Receipt Date: 20151123
  Transmission Date: 20160304
  Serious: Yes (Death, Hospitalization)
  Sender: FDA-Public Use
  Company Number: None

PATIENT
  Age: 62 Year
  Sex: Male
  Weight: 54.43 kg

DRUGS (1)
  1. CISPLATIN. [Suspect]
     Active Substance: CISPLATIN
     Dates: end: 20150603

REACTIONS (7)
  - Dyspnoea [None]
  - Wound infection [None]
  - Confusional state [None]
  - Neoplasm progression [None]
  - Swelling face [None]
  - Pyrexia [None]
  - Hypercalcaemia [None]

NARRATIVE: CASE EVENT DATE: 20150621
